FAERS Safety Report 4299044-2 (Version None)
Quarter: 2004Q1

REPORT INFORMATION
  Report Type: 
  Country: None (occurrence: None)
  Receive Date: 20040217
  Receipt Date: 20040202
  Transmission Date: 20041129
  Serious: Yes (Death)
  Sender: FDA-Public Use
  Company Number: ZANA001129

PATIENT
  Age: 61 Year
  Sex: Female

DRUGS (10)
  1. ZANAFLEX [Suspect]
     Indication: MUSCLE SPASTICITY
     Dosage: 4 MG DAILY ORAL
     Route: 048
     Dates: start: 20031014, end: 20031015
  2. ZANAFLEX [Suspect]
     Indication: VENTRICULAR FIBRILLATION
     Dosage: 4 MG DAILY ORAL
     Route: 048
     Dates: start: 20031014, end: 20031015
  3. VANCOCYN (VANCOMYCIN) [Concomitant]
  4. FLAGYL [Concomitant]
  5. TYLENOL [Concomitant]
  6. NEURONTIN [Concomitant]
  7. ATIVAN [Concomitant]
  8. VALIUM [Concomitant]
  9. DIOVOL (MAGNESIUM HYDROXIDE) [Concomitant]
  10. LOVENOX [Concomitant]

REACTIONS (4)
  - MYOCARDIAL INFARCTION [None]
  - RASH [None]
  - URTICARIA [None]
  - VENTRICULAR FIBRILLATION [None]
